FAERS Safety Report 6703962-2 (Version None)
Quarter: 2010Q2

REPORT INFORMATION
  Report Type: 
  Country: None (occurrence: None)
  Receive Date: 20100430
  Receipt Date: 20100422
  Transmission Date: 20101027
  Serious: Yes (Other)
  Sender: FDA-Public Use
  Company Number: FR-PFIZER INC-2010050796

PATIENT
  Age: 67 Year
  Sex: Male

DRUGS (4)
  1. TAHOR [Suspect]
     Dosage: 20 MG, UNK
     Dates: start: 20090301, end: 20100414
  2. TAHOR [Suspect]
     Dosage: UNK
     Dates: start: 20100201, end: 20100414
  3. TENORMIN [Concomitant]
     Dosage: UNK
     Dates: start: 20000101
  4. VASTAREL [Concomitant]
     Dosage: UNK
     Dates: start: 20000101

REACTIONS (3)
  - ARTHRALGIA [None]
  - MYALGIA [None]
  - SLEEP DISORDER [None]
